FAERS Safety Report 16827999 (Version 6)
Quarter: 2019Q4

REPORT INFORMATION
  Report Type: Spontaneous
  Country: PL (occurrence: PL)
  Receive Date: 20190919
  Receipt Date: 20191007
  Transmission Date: 20200122
  Serious: Yes (Other)
  Sender: FDA-Public Use
  Company Number: PL-PFIZER INC-2019393148

PATIENT
  Age: 79 Year
  Sex: Male

DRUGS (15)
  1. AMIODARONE [Suspect]
     Active Substance: AMIODARONE
     Indication: ARRHYTHMIA
     Dosage: 100 MILLIGRAM
     Route: 065
  2. AMIODARONE [Suspect]
     Active Substance: AMIODARONE
     Dosage: 200 MILLIGRAM
     Route: 065
  3. BISOPROLOL FUMARATE. [Suspect]
     Active Substance: BISOPROLOL FUMARATE
     Dosage: 5 MG, UNK
     Dates: start: 201604
  4. AMIODARONE [Suspect]
     Active Substance: AMIODARONE
     Dosage: UNK
     Route: 065
     Dates: start: 201606
  5. EPLERENONE. [Suspect]
     Active Substance: EPLERENONE
     Dosage: 25 MG, UNK
     Route: 065
  6. CLOPIDOGREL [Suspect]
     Active Substance: CLOPIDOGREL BISULFATE
     Dosage: 75 MG, UNK
     Route: 065
  7. PANTOPRAZOLE [Suspect]
     Active Substance: PANTOPRAZOLE
     Dosage: 20 MILLIGRAM, QD
     Route: 065
  8. BISOPROLOL FUMARATE. [Suspect]
     Active Substance: BISOPROLOL FUMARATE
     Dosage: 1.25 MILLIGRAM, QD
     Route: 065
  9. ATORVASTATIN CALCIUM. [Suspect]
     Active Substance: ATORVASTATIN CALCIUM
     Dosage: 20 MILLIGRAM, QD
     Route: 065
  10. LEVOTHYROXINE SODIUM. [Suspect]
     Active Substance: LEVOTHYROXINE SODIUM
     Indication: HYPOTHYROIDISM
     Dosage: 25 MICROGRAM, QD
     Route: 065
  11. ACENOCOUMAROL [Suspect]
     Active Substance: ACENOCOUMAROL
     Dosage: UNK
     Route: 065
  12. BISOPROLOL FUMARATE. [Suspect]
     Active Substance: BISOPROLOL FUMARATE
     Dosage: 2.5 MG, UNK
     Route: 065
  13. AMIODARONE [Suspect]
     Active Substance: AMIODARONE
     Dosage: 50 MILLIGRAM, QD
     Route: 065
  14. ACETYLSALICYLIC ACID [Suspect]
     Active Substance: ASPIRIN
     Dosage: 150 MG, UNK
     Route: 065
  15. LEVOTHYROXINE SODIUM. [Suspect]
     Active Substance: LEVOTHYROXINE SODIUM
     Dosage: 50 MICROGRAM, QD
     Route: 065

REACTIONS (11)
  - Blood thyroid stimulating hormone increased [Unknown]
  - Arrhythmia [Unknown]
  - Drug ineffective [Unknown]
  - Supraventricular tachycardia [Unknown]
  - Atrial flutter [Unknown]
  - Electrocardiogram PQ interval prolonged [Unknown]
  - Electrocardiogram QT prolonged [Unknown]
  - Ventricular tachycardia [Unknown]
  - Atrial tachycardia [Unknown]
  - Heart rate increased [Unknown]
  - Thyroid disorder [Unknown]
